FAERS Safety Report 14630238 (Version 4)
Quarter: 2018Q2

REPORT INFORMATION
  Report Type: Spontaneous
  Country: US (occurrence: US)
  Receive Date: 20180313
  Receipt Date: 20180422
  Transmission Date: 20180711
  Serious: Yes (Hospitalization, Other)
  Sender: FDA-Public Use
  Company Number: US-APOTEX-2018AP007484

PATIENT
  Age: 61 Year
  Sex: Male

DRUGS (2)
  1. ZOLPIDEM [Suspect]
     Active Substance: ZOLPIDEM\ZOLPIDEM TARTRATE
     Indication: PRODUCT USED FOR UNKNOWN INDICATION
     Dosage: UNK
     Route: 065
  2. QUETIAPINE. [Suspect]
     Active Substance: QUETIAPINE
     Indication: PRODUCT USED FOR UNKNOWN INDICATION
     Dosage: UNK
     Route: 065

REACTIONS (9)
  - Suicide attempt [Unknown]
  - Hyperhidrosis [Unknown]
  - Flushing [Unknown]
  - Electrocardiogram abnormal [Recovered/Resolved]
  - Tremor [Unknown]
  - Intentional overdose [Unknown]
  - Confusional state [Unknown]
  - Agitation [Unknown]
  - Miosis [Unknown]
